FAERS Safety Report 9463279 (Version 2)
Quarter: 2013Q3

REPORT INFORMATION
  Report Type: Spontaneous
  Country: GB (occurrence: GB)
  Receive Date: 20130819
  Receipt Date: 20130905
  Transmission Date: 20140515
  Serious: Yes (Other)
  Sender: FDA-Public Use
  Company Number: GB-AMGEN-GBRSP2013056931

PATIENT
  Age: 42 Year
  Sex: Male
  Weight: 82 kg

DRUGS (3)
  1. NPLATE [Suspect]
     Indication: IMMUNE THROMBOCYTOPENIC PURPURA
     Dosage: 160 MUG, QWK
     Route: 058
     Dates: start: 20130701
  2. NPLATE [Suspect]
     Route: 058
  3. NPLATE [Suspect]
     Dosage: UNK
     Route: 058

REACTIONS (4)
  - Therapeutic response decreased [Unknown]
  - Petechiae [Not Recovered/Not Resolved]
  - Platelet count abnormal [Unknown]
  - Diarrhoea [Recovered/Resolved]
